FAERS Safety Report 4877756-7 (Version None)
Quarter: 2006Q1

REPORT INFORMATION
  Report Type: 
  Country: None (occurrence: None)
  Receive Date: 20060111
  Receipt Date: 20030605
  Transmission Date: 20060701
  Serious: Yes (Hospitalization, Other)
  Sender: FDA-Public Use
  Company Number: US-MERCK-0306USA00654

PATIENT
  Age: 72 Year
  Sex: Female
  Weight: 73 kg

DRUGS (11)
  1. VIOXX [Suspect]
     Indication: ARTHRITIS
     Route: 048
     Dates: start: 19990101, end: 20001030
  2. VIOXX [Suspect]
     Route: 048
     Dates: start: 20000920
  3. AVALIDE [Concomitant]
     Route: 065
     Dates: start: 20000801, end: 20001030
  4. PRILOSEC [Concomitant]
     Route: 065
  5. SYNTHROID [Concomitant]
     Route: 048
  6. ASPIRIN [Concomitant]
     Route: 065
  7. PYRIDOXINE [Concomitant]
     Route: 065
  8. VITAMIN E [Concomitant]
     Route: 065
  9. CIPRO [Concomitant]
     Route: 048
     Dates: start: 20000822
  10. DURICEF [Concomitant]
     Route: 065
     Dates: start: 20000822
  11. CELESTONE TAB [Concomitant]
     Route: 065

REACTIONS (40)
  - ABDOMINAL PAIN LOWER [None]
  - ANGINA PECTORIS [None]
  - ANXIETY [None]
  - ARTHRALGIA [None]
  - ARTHROPOD STING [None]
  - BLISTER [None]
  - BRONCHITIS [None]
  - BRONCHITIS ACUTE [None]
  - CARDIAC DISORDER [None]
  - CARDIAC FAILURE CONGESTIVE [None]
  - CARPAL TUNNEL SYNDROME [None]
  - CELLULITIS [None]
  - CHEST PAIN [None]
  - COLONIC POLYP [None]
  - CONJUNCTIVAL HYPERAEMIA [None]
  - COUGH [None]
  - DEEP VEIN THROMBOSIS [None]
  - DYSPNOEA [None]
  - DYSURIA [None]
  - EPISTAXIS [None]
  - FACIAL PAIN [None]
  - FATIGUE [None]
  - GASTRIC DISORDER [None]
  - GASTRITIS [None]
  - GASTROENTERITIS VIRAL [None]
  - GASTROINTESTINAL DISORDER [None]
  - HYPERTENSION [None]
  - INSOMNIA [None]
  - NASOPHARYNGITIS [None]
  - NEPHROPATHY [None]
  - ONYCHOMYCOSIS [None]
  - PHARYNGOLARYNGEAL PAIN [None]
  - POSTNASAL DRIP [None]
  - PULSE ABNORMAL [None]
  - RENAL FAILURE CHRONIC [None]
  - SKIN CANCER [None]
  - THERMAL BURN [None]
  - TINNITUS [None]
  - TONSILLAR DISORDER [None]
  - URINARY TRACT INFECTION [None]
